FAERS Safety Report 25248870 (Version 2)
Quarter: 2025Q3

REPORT INFORMATION
  Report Type: Spontaneous
  Country: GB (occurrence: GB)
  Receive Date: 20250429
  Receipt Date: 20250809
  Transmission Date: 20251020
  Serious: Yes (Other)
  Sender: ALEXION PHARMACEUTICALS
  Company Number: GB-ASTRAZENECA-202504GBR018515GB

PATIENT
  Sex: Male

DRUGS (11)
  1. OSIMERTINIB [Suspect]
     Active Substance: OSIMERTINIB
     Dosage: 160 MILLIGRAM, QD
     Route: 065
     Dates: start: 20240429, end: 20241015
  2. CARBOPLATIN [Concomitant]
     Active Substance: CARBOPLATIN
     Route: 065
     Dates: start: 20241113, end: 20250310
  3. PEMETREXED [Concomitant]
     Active Substance: PEMETREXED
     Route: 065
     Dates: start: 20241113, end: 20250310
  4. PACLITAXEL [Concomitant]
     Active Substance: PACLITAXEL
     Route: 065
  5. DEXAMETHASONE [Concomitant]
     Active Substance: DEXAMETHASONE
     Indication: Nausea
     Dosage: 4 MILLIGRAM, BID
     Route: 065
  6. DEXAMETHASONE [Concomitant]
     Active Substance: DEXAMETHASONE
     Indication: Vomiting
  7. DEXAMETHASONE [Concomitant]
     Active Substance: DEXAMETHASONE
     Indication: Headache
  8. LEVOMEPROMAZINE [Concomitant]
     Active Substance: LEVOMEPROMAZINE
     Dosage: 3 MILLIGRAM, BID AT NIGHT, PRN
     Route: 065
  9. POLYETHYLENE GLYCOLS [Concomitant]
     Active Substance: POLYETHYLENE GLYCOLS
     Route: 065
  10. ACETAMINOPHEN [Concomitant]
     Active Substance: ACETAMINOPHEN
     Dosage: 1 GRAM, Q6H, PRN
     Route: 065
  11. ZOPICLONE [Concomitant]
     Active Substance: ZOPICLONE
     Route: 065

REACTIONS (2)
  - Metastases to meninges [Unknown]
  - Malignant neoplasm progression [Unknown]
